FAERS Safety Report 18244240 (Version 3)
Quarter: 2021Q3

REPORT INFORMATION
  Report Type: Spontaneous
  Country: ES (occurrence: ES)
  Receive Date: 20200909
  Receipt Date: 20210727
  Transmission Date: 20211014
  Serious: Yes (Hospitalization)
  Sender: FDA-Public Use
  Company Number: ES-AUROBINDO-AUR-APL-2020-046804

PATIENT
  Age: 62 Year
  Sex: Female

DRUGS (1)
  1. ALENDRONIC ACID  FILM?COATED TABLETS [Suspect]
     Active Substance: ALENDRONIC ACID
     Indication: PRODUCT USED FOR UNKNOWN INDICATION
     Dosage: 1 DOSAGE FORM, EVERY WEEK (1 TABLET EVERY 7 DAYS)
     Route: 048

REACTIONS (2)
  - Drug intolerance [Recovering/Resolving]
  - Oesophagitis [Recovering/Resolving]
